FAERS Safety Report 23706585 (Version 2)
Quarter: 2024Q2

REPORT INFORMATION
  Report Type: Spontaneous
  Country: ES (occurrence: ES)
  Receive Date: 20240404
  Receipt Date: 20240419
  Transmission Date: 20240716
  Serious: Yes (Death, Life-Threatening)
  Sender: FDA-Public Use
  Company Number: None

PATIENT
  Age: 47 Year
  Sex: Female

DRUGS (10)
  1. CARBAMAZEPINE [Interacting]
     Active Substance: CARBAMAZEPINE
     Indication: Pain
     Dosage: 600 MILLIGRAM, QD
     Route: 048
     Dates: start: 2023, end: 20240226
  2. TAPENTADOL [Interacting]
     Active Substance: TAPENTADOL
     Indication: Pain
     Dosage: 100 MILLIGRAM, Q12H
     Route: 048
     Dates: start: 20240205, end: 20240226
  3. METHOCARBAMOL [Interacting]
     Active Substance: METHOCARBAMOL
     Indication: Pain
     Dosage: 500 MILLIGRAM, QD
     Route: 048
     Dates: start: 2023, end: 20240226
  4. DIAZEPAM [Interacting]
     Active Substance: DIAZEPAM
     Indication: Pain
     Dosage: 10 MILLIGRAM, QD
     Route: 048
     Dates: start: 2023, end: 20240226
  5. TRAMADOL [Interacting]
     Active Substance: TRAMADOL\TRAMADOL HYDROCHLORIDE
     Indication: Pain
     Dosage: 150 MILLIGRAM, Q8HR
     Route: 048
     Dates: start: 20240213, end: 20240226
  6. AMITRIPTYLINE HYDROCHLORIDE [Interacting]
     Active Substance: AMITRIPTYLINE HYDROCHLORIDE
     Indication: Pain
     Dosage: 50 MILLIGRAM, QD
     Route: 048
     Dates: start: 2023, end: 20240226
  7. PREGABALIN [Interacting]
     Active Substance: PREGABALIN
     Indication: Pain
     Dosage: 600 MILLIGRAM, QD
     Route: 048
     Dates: start: 2023, end: 20240226
  8. TRAZODONE HYDROCHLORIDE [Interacting]
     Active Substance: TRAZODONE HYDROCHLORIDE
     Indication: Pain
     Dosage: 150 MILLIGRAM, QD
     Route: 048
     Dates: start: 2023, end: 20240226
  9. LIDOCAINE HYDROCHLORIDE [Interacting]
     Active Substance: LIDOCAINE HYDROCHLORIDE
     Indication: Pain
     Dosage: 370 MILLIGRAM
     Route: 042
     Dates: start: 20240216, end: 20240223
  10. LEVOFLOXACIN [Interacting]
     Active Substance: LEVOFLOXACIN
     Indication: Respiratory tract infection
     Dosage: 500 MILLIGRAM, QD
     Route: 048
     Dates: start: 20240225, end: 20240226

REACTIONS (4)
  - Cardio-respiratory arrest [Fatal]
  - Respiratory depression [Recovered/Resolved]
  - Confusional state [Recovered/Resolved]
  - Sudden death [Fatal]

NARRATIVE: CASE EVENT DATE: 20240224
